FAERS Safety Report 4901951-1 (Version None)
Quarter: 2006Q1

REPORT INFORMATION
  Report Type: 
  Country: None (occurrence: None)
  Receive Date: 20060206
  Receipt Date: 20060130
  Transmission Date: 20060701
  Serious: Yes (Hospitalization)
  Sender: FDA-Public Use
  Company Number: 2006PK00269

PATIENT
  Age: 20925 Day
  Sex: Female

DRUGS (4)
  1. NOLVADEX [Suspect]
     Indication: BREAST CANCER
     Route: 048
     Dates: start: 20010101
  2. VENLAFAXINE HCL [Concomitant]
     Indication: DEPRESSION
     Route: 048
  3. BELOC [Concomitant]
     Indication: ARRHYTHMIA
     Route: 048
  4. MAGNESIUM VERLA [Concomitant]
     Indication: PROPHYLAXIS
     Route: 048

REACTIONS (2)
  - PERSONALITY DISORDER [None]
  - TRICHOTILLOMANIA [None]
